FAERS Safety Report 13096798 (Version 1)
Quarter: 2017Q1

REPORT INFORMATION
  Report Type: Spontaneous
  Country: DE (occurrence: DE)
  Receive Date: 20170109
  Receipt Date: 20170109
  Transmission Date: 20170428
  Serious: Yes (Congenital Anomaly)
  Sender: FDA-Public Use
  Company Number: DE-MYLANLABS-2016M1058592

PATIENT
  Age: 1 Day
  Sex: Male
  Weight: 4 kg

DRUGS (7)
  1. FOLIO                              /00349401/ [Concomitant]
     Active Substance: CYANOCOBALAMIN\FOLIC ACID
     Indication: PROPHYLAXIS OF NEURAL TUBE DEFECT
     Dosage: 0.4 [MG/D ]
     Route: 064
  2. HCT 25 [Concomitant]
     Indication: HYPERTENSION
     Dosage: 25 [MG/D ]
     Route: 064
     Dates: start: 20151013, end: 20151126
  3. ALPHA-METHYLDOPA [Suspect]
     Active Substance: METHYLDOPA
     Indication: HYPERTENSION
     Dosage: 750 [MG/D ]
     Route: 064
     Dates: start: 20151115, end: 20160711
  4. HUMINSULIN BASAL [Concomitant]
     Active Substance: INSULIN NOS
     Indication: GESTATIONAL DIABETES
     Dosage: FROM WHEN?
     Route: 064
  5. L-THYROXIN [Concomitant]
     Active Substance: LEVOTHYROXINE SODIUM
     Indication: HYPOTHYROIDISM
     Dosage: 175 [?G/D ]
     Route: 064
     Dates: start: 20151013, end: 20160711
  6. ASPIRIN. [Concomitant]
     Active Substance: ASPIRIN
     Indication: ULTRASOUND DOPPLER ABNORMAL
     Dosage: 100 [MG/D ]/ BEGIN NOT KNOWN
     Route: 064
  7. METOPROLOL. [Suspect]
     Active Substance: METOPROLOL
     Indication: HYPERTENSION
     Dosage: 50 [MG/D ]
     Route: 064

REACTIONS (5)
  - Partial seizures [Recovered/Resolved]
  - Cerebral infarction [Recovered/Resolved]
  - Atrial septal defect [Unknown]
  - Patent ductus arteriosus [Unknown]
  - Hypospadias [Not Recovered/Not Resolved]

NARRATIVE: CASE EVENT DATE: 20160711
